FAERS Safety Report 10150630 (Version 1)
Quarter: 2014Q2

REPORT INFORMATION
  Report Type: Spontaneous
  Country: CA (occurrence: CA)
  Receive Date: 20140502
  Receipt Date: 20140502
  Transmission Date: 20141212
  Serious: Yes (Hospitalization)
  Sender: FDA-Public Use
  Company Number: PHHY2014CA051258

PATIENT
  Age: 65 Year
  Sex: Female

DRUGS (6)
  1. PARACETAMOL [Suspect]
     Dosage: 60 G
  2. PREDNISONE [Concomitant]
  3. ETIDRONATE [Concomitant]
  4. CALCIUM CARBONATE [Concomitant]
  5. VITAMIN D [Concomitant]
     Dosage: 1000 IU
  6. ACETYLSALICYLIC ACID [Concomitant]
     Dosage: 81 MG

REACTIONS (8)
  - Suicide attempt [Unknown]
  - Unresponsive to stimuli [Recovered/Resolved]
  - Areflexia [Recovered/Resolved]
  - Bladder dilatation [Recovered/Resolved]
  - Lactic acidosis [Recovered/Resolved]
  - Vomiting [Recovered/Resolved]
  - Coma scale abnormal [Recovered/Resolved]
  - Overdose [Recovered/Resolved]
